FAERS Safety Report 16443862 (Version 1)
Quarter: 2019Q2

REPORT INFORMATION
  Report Type: Spontaneous
  Country: US (occurrence: US)
  Receive Date: 20190618
  Receipt Date: 20190618
  Transmission Date: 20190711
  Serious: Yes (Other)
  Sender: FDA-Public Use
  Company Number: US-AUROBINDO-AUR-APL-2019-034419

PATIENT

DRUGS (10)
  1. KETOROLAC [Suspect]
     Active Substance: KETOROLAC\KETOROLAC TROMETHAMINE
     Dosage: UNK, EVERY 8 HOURS
     Route: 042
  2. METHADONE [Suspect]
     Active Substance: METHADONE HYDROCHLORIDE
     Indication: PAIN MANAGEMENT
     Dosage: UNK
     Route: 065
  3. HYDROMORPHONE [Suspect]
     Active Substance: HYDROMORPHONE
     Dosage: UNK, INCREASED DOSE ON POD1
     Route: 042
  4. ACETAMINOPHEN. [Suspect]
     Active Substance: ACETAMINOPHEN
     Indication: PAIN MANAGEMENT
     Dosage: UNK, EVERY 6 HOURS
     Route: 065
  5. METHADONE [Suspect]
     Active Substance: METHADONE HYDROCHLORIDE
     Dosage: UNK, INCREASED DOSE ON POD1
     Route: 065
  6. KETAMINE [Suspect]
     Active Substance: KETAMINE
     Indication: PAIN MANAGEMENT
     Dosage: 2-5 MICROGRAM/KG/MIN
     Route: 065
  7. METHADONE [Suspect]
     Active Substance: METHADONE HYDROCHLORIDE
     Dosage: 2.5 MILLIGRAM, 3 TIMES A DAY (DEESCALATED)
     Route: 042
  8. METHYLNALTREXONE [Suspect]
     Active Substance: METHYLNALTREXONE
     Indication: PAIN MANAGEMENT
     Dosage: 12 MILLIGRAM
     Route: 058
  9. HYDROMORPHONE [Suspect]
     Active Substance: HYDROMORPHONE
     Indication: PAIN MANAGEMENT
     Dosage: UNK
     Route: 042
  10. KETOROLAC [Suspect]
     Active Substance: KETOROLAC\KETOROLAC TROMETHAMINE
     Indication: PAIN MANAGEMENT
     Dosage: 15 MILLIGRAM, EVERY 6 HOURS
     Route: 042

REACTIONS (4)
  - Constipation [Unknown]
  - Abdominal pain [Unknown]
  - Drug ineffective [Unknown]
  - Intestinal pseudo-obstruction [Unknown]
